FAERS Safety Report 9513735 (Version 1)
Quarter: 2013Q3

REPORT INFORMATION
  Report Type: Spontaneous
  Country: FR (occurrence: FR)
  Receive Date: 20130910
  Receipt Date: 20130910
  Transmission Date: 20140515
  Serious: Yes (Other)
  Sender: FDA-Public Use
  Company Number: ALCN2013FR004422

PATIENT
  Age: 79 Year
  Sex: Male

DRUGS (2)
  1. ATROPINE SULFATE [Suspect]
     Dosage: 1 DRP, UNK
     Route: 047
     Dates: start: 20130803
  2. CORRECTOL (BISACODYL) [Suspect]
     Dosage: UNK, NO TREATMENT
     Route: 047

REACTIONS (5)
  - Diplopia [Recovered/Resolved]
  - Vision blurred [Recovered/Resolved]
  - Eye irritation [Recovered/Resolved]
  - Wrong drug administered [Recovered/Resolved]
  - Medication error [Recovered/Resolved]
